FAERS Safety Report 7675182-9 (Version None)
Quarter: 2011Q3

REPORT INFORMATION
  Report Type: 
  Country: None (occurrence: None)
  Receive Date: 20110810
  Receipt Date: 20110805
  Transmission Date: 20111222
  Serious: Yes (Hospitalization)
  Sender: FDA-Public Use
  Company Number: FR-SANOFI-AVENTIS-2011SA050176

PATIENT
  Age: 78 Year
  Sex: Female

DRUGS (10)
  1. ESOMEPRAZOLE MAGNESIUM [Concomitant]
     Route: 048
  2. FUROSEMIDE [Concomitant]
     Route: 048
  3. ISONIAZID [Concomitant]
     Route: 048
  4. PLAVIX [Suspect]
     Route: 048
     Dates: start: 20101130
  5. COUMADIN [Suspect]
     Indication: ARRHYTHMIA
     Route: 048
     Dates: start: 20110415, end: 20110703
  6. ATORVASTATIN CALCIUM [Concomitant]
     Route: 048
  7. PERINDOPRIL [Concomitant]
     Route: 048
  8. LANTUS [Concomitant]
     Route: 058
  9. ASPIRIN [Suspect]
     Route: 048
  10. LEXOMIL [Concomitant]
     Indication: ANXIETY
     Route: 048

REACTIONS (3)
  - HAEMATOMA [None]
  - ANAEMIA [None]
  - INTERNATIONAL NORMALISED RATIO INCREASED [None]
